FAERS Safety Report 4294395-X (Version None)
Quarter: 2004Q1

REPORT INFORMATION
  Report Type: 
  Country: None (occurrence: None)
  Receive Date: 20040211
  Receipt Date: 20030514
  Transmission Date: 20041129
  Serious: Yes (Hospitalization)
  Sender: FDA-Public Use
  Company Number: A0406374A

PATIENT
  Age: 50 Year
  Sex: Male

DRUGS (2)
  1. MELPHALAN INJECTION (MELPHALAN) [Suspect]
     Indication: MULTIPLE MYELOMA
     Dosage: 378 MG./ INTRAVENOUS
     Route: 042
     Dates: start: 20021215
  2. THALIDOMIDE (FORMULATION UNKNOWN) (THALIDOMIDE) [Suspect]
     Indication: MULTIPLE MYELOMA
     Dosage: 100 MG/DAY/ ORAL
     Route: 048
     Dates: start: 20030106, end: 20030320

REACTIONS (2)
  - BLOOD CULTURE POSITIVE [None]
  - PNEUMONIA BACTERIAL [None]
